FAERS Safety Report 4349478-2 (Version None)
Quarter: 2004Q2

REPORT INFORMATION
  Report Type: 
  Country: None (occurrence: None)
  Receive Date: 20040426
  Receipt Date: 20040415
  Transmission Date: 20050107
  Serious: Yes (Hospitalization)
  Sender: FDA-Public Use
  Company Number: 04P-087-0257624-00

PATIENT
  Age: 60 Year
  Sex: Female

DRUGS (3)
  1. BIAXIN [Suspect]
     Indication: HELICOBACTER INFECTION
     Dosage: 1 IN 1 D PER ORAL
     Route: 048
     Dates: start: 20040223, end: 20040227
  2. AMOXICILLIN [Suspect]
     Indication: HELICOBACTER INFECTION
     Dosage: 1 IN 1 D ORAL
     Route: 048
     Dates: start: 20040223, end: 20040227
  3. LANSOPRAZOLE [Suspect]
     Indication: HELICOBACTER INFECTION
     Dosage: 1 IN 1 D PER ORAL
     Route: 048
     Dates: start: 20040223, end: 20040227

REACTIONS (3)
  - DIARRHOEA [None]
  - ENTEROCOLITIS HAEMORRHAGIC [None]
  - MELAENA [None]
